FAERS Safety Report 6902937-8 (Version None)
Quarter: 2010Q3

REPORT INFORMATION
  Report Type: 
  Country: None (occurrence: None)
  Receive Date: 20100803
  Receipt Date: 20080708
  Transmission Date: 20110219
  Serious: Yes (Other)
  Sender: FDA-Public Use
  Company Number: US-PFIZER INC-2008045784

PATIENT
  Sex: Female
  Weight: 55.8 kg

DRUGS (4)
  1. LYRICA [Suspect]
     Indication: FIBROMYALGIA
     Route: 048
     Dates: start: 20080101
  2. TRAZODONE [Concomitant]
     Indication: SLEEP DISORDER
  3. ROZEREM [Concomitant]
     Indication: SLEEP DISORDER
  4. DARIFENACIN [Concomitant]
     Indication: HYPERTONIC BLADDER

REACTIONS (9)
  - DIZZINESS [None]
  - DRY EYE [None]
  - EYE DISORDER [None]
  - EYE PRURITUS [None]
  - GAIT DISTURBANCE [None]
  - HYPERSENSITIVITY [None]
  - READING DISORDER [None]
  - VISUAL FIELD DEFECT [None]
  - VISUAL IMPAIRMENT [None]
